FAERS Safety Report 14552175 (Version 6)
Quarter: 2018Q3

REPORT INFORMATION
  Report Type: Report from Study
  Country: US (occurrence: US)
  Receive Date: 20180220
  Receipt Date: 20180904
  Transmission Date: 20181010
  Serious: Yes (Hospitalization, Disabling)
  Sender: FDA-Public Use
  Company Number: US-ROCHE-2053245

PATIENT
  Age: 50 Year
  Sex: Male
  Weight: 73 kg

DRUGS (47)
  1. ACETAMINOPHEN. [Concomitant]
     Active Substance: ACETAMINOPHEN
     Indication: BACK PAIN
     Dosage: SUBSEQUENT DOSE ON 01/SEP/2014
     Route: 065
     Dates: start: 20050701
  2. ACETAMINOPHEN. [Concomitant]
     Active Substance: ACETAMINOPHEN
     Indication: PYREXIA
     Route: 065
     Dates: start: 20140403, end: 20140515
  3. ACETAMINOPHEN. [Concomitant]
     Active Substance: ACETAMINOPHEN
     Route: 065
     Dates: start: 20130511, end: 20130626
  4. METHYLPREDNISOLONE. [Concomitant]
     Active Substance: METHYLPREDNISOLONE
     Dosage: ALSO RECEIVED 40 MG
     Route: 065
     Dates: start: 20171226, end: 20171227
  5. CANNABIDIOL [Concomitant]
     Active Substance: CANNABIDIOL
     Indication: MUSCLE SPASTICITY
     Dosage: RECIEVED ON 15NOV/2017
     Route: 065
     Dates: start: 20171014
  6. PROTANDIM [Concomitant]
     Active Substance: DIETARY SUPPLEMENT
     Route: 065
     Dates: start: 20150802, end: 20160415
  7. TAMSULOSIN [Concomitant]
     Active Substance: TAMSULOSIN
     Indication: NEUROGENIC BLADDER
     Route: 065
     Dates: start: 20140508
  8. VITAMIN B6 [Concomitant]
     Active Substance: PYRIDOXINE HYDROCHLORIDE
     Route: 065
     Dates: start: 20130901
  9. ARNICA CREAM [Concomitant]
     Indication: ANALGESIC THERAPY
     Route: 065
     Dates: start: 20140508
  10. BACLOFEN. [Concomitant]
     Active Substance: BACLOFEN
     Route: 065
     Dates: start: 20170223
  11. ALPHA LIPOIC ACID [Concomitant]
     Active Substance: .ALPHA.-LIPOIC ACID
     Route: 065
     Dates: start: 20170601, end: 20171222
  12. ACETAMINOPHEN. [Concomitant]
     Active Substance: ACETAMINOPHEN
     Route: 065
     Dates: start: 20171223
  13. ASHWAGANDHA [Concomitant]
     Active Substance: HERBALS
     Dosage: 0.5 TEASPOON
     Route: 065
     Dates: start: 20150401
  14. FOLIC ACID. [Concomitant]
     Active Substance: FOLIC ACID
     Route: 065
     Dates: start: 20110501, end: 20171101
  15. ONDANSETRON [Concomitant]
     Active Substance: ONDANSETRON
     Indication: VOMITING
  16. BACLOFEN. [Concomitant]
     Active Substance: BACLOFEN
     Indication: MUSCLE SPASTICITY
     Route: 065
     Dates: start: 20170627, end: 20170704
  17. TAMIFLU [Concomitant]
     Active Substance: OSELTAMIVIR PHOSPHATE
     Route: 065
     Dates: start: 20180115, end: 20180127
  18. OCRELIZUMAB. [Suspect]
     Active Substance: OCRELIZUMAB
     Indication: PRIMARY PROGRESSIVE MULTIPLE SCLEROSIS
     Dosage: TWO INTRAVENOUS (IV) INFUSIONS OF BLINDED OCRELIZUMAB SEPARATED BY 14 DAYS IN EACH TREATMENT CYCLE O
     Route: 042
     Dates: start: 20121114, end: 20160204
  19. OCRELIZUMAB. [Suspect]
     Active Substance: OCRELIZUMAB
     Route: 042
     Dates: start: 20160805
  20. OCRELIZUMAB. [Suspect]
     Active Substance: OCRELIZUMAB
     Dosage: SUBSEQUENT DOSES RECEIVED ON  25/MAY/2018
     Route: 042
     Dates: start: 20171207
  21. ACETAMINOPHEN. [Concomitant]
     Active Substance: ACETAMINOPHEN
     Route: 065
     Dates: start: 20150813, end: 20151215
  22. R?LIPOIC ACID [Concomitant]
     Route: 065
     Dates: start: 20141014
  23. VITAMIN E [Concomitant]
     Active Substance: .ALPHA.-TOCOPHEROL
     Route: 065
     Dates: start: 20151130, end: 20180101
  24. BACLOFEN. [Concomitant]
     Active Substance: BACLOFEN
     Indication: MUSCLE SPASMS
     Route: 065
     Dates: start: 20171223, end: 20171229
  25. GADAVIST [Concomitant]
     Active Substance: GADOBUTROL
     Route: 065
     Dates: start: 20180223, end: 20180223
  26. ACETAMINOPHEN. [Concomitant]
     Active Substance: ACETAMINOPHEN
     Indication: HEADACHE
     Dosage: SUBSEQUENT DOSE ON 14/NOV/2012, 27/NOV/2012, 01/MAY/2013, 16/MAY/2013, 05/NOV/13, 02/APR/2014, 16/AP
     Route: 065
     Dates: start: 20121114
  27. ACETAMINOPHEN. [Concomitant]
     Active Substance: ACETAMINOPHEN
     Indication: RESPIRATORY SYMPTOM
     Route: 048
     Dates: start: 20131022
  28. DIPHENHYDRAMINE. [Concomitant]
     Active Substance: DIPHENHYDRAMINE
     Route: 048
     Dates: start: 20131022
  29. SKULLCAP [Concomitant]
     Active Substance: SCUTELLARIA LATERIFLORA
     Route: 065
     Dates: start: 20141014
  30. GADAVIST [Concomitant]
     Active Substance: GADOBUTROL
     Route: 065
     Dates: start: 20170126, end: 20170126
  31. DIPHENHYDRAMINE. [Concomitant]
     Active Substance: DIPHENHYDRAMINE
     Dosage: SUBSEQUENT DOSES RECEIVED ON 27/NOV/2012, 01/MAY/2013, 16/MAY/2013, 05/NOV/2013, 02/APR/2014, 16/APR
     Route: 065
     Dates: start: 20121114
  32. PROTANDIM [Concomitant]
     Active Substance: DIETARY SUPPLEMENT
     Indication: FATIGUE
     Route: 065
     Dates: start: 20150801, end: 20150821
  33. BACLOFEN. [Concomitant]
     Active Substance: BACLOFEN
     Route: 065
     Dates: start: 20171230, end: 20180222
  34. VALIUM [Concomitant]
     Active Substance: DIAZEPAM
  35. SKULLCAP [Concomitant]
     Active Substance: SCUTELLARIA LATERIFLORA
     Route: 065
     Dates: start: 20111101, end: 20140601
  36. BENADRYL [Concomitant]
     Active Substance: DIPHENHYDRAMINE HYDROCHLORIDE
     Route: 065
     Dates: start: 20180525
  37. OCRELIZUMAB. [Suspect]
     Active Substance: OCRELIZUMAB
     Indication: PRIMARY PROGRESSIVE MULTIPLE SCLEROSIS
     Dosage: TWO IV INFUSIONS OF OCRELIZUMAB 300 MG SEPARATED BY 14 DAYS FOR CYCLE 1 AND SINGLE IV INFUSION OF OC
     Route: 042
     Dates: start: 20160205
  38. ACETAMINOPHEN. [Concomitant]
     Active Substance: ACETAMINOPHEN
     Route: 065
     Dates: start: 20160211, end: 20160218
  39. METHYLPREDNISOLONE. [Concomitant]
     Active Substance: METHYLPREDNISOLONE
     Indication: PNEUMONIA
     Dosage: SUBSEQUENT DOSES RECEIVED ON, 27/NOV/2012,0 1/MAY/2013, 16/MAY/2013, 22/OCT/2013, 05/NOV/2013, 02/AP
     Route: 065
     Dates: start: 20121114
  40. PROTANDIM [Concomitant]
     Active Substance: DIETARY SUPPLEMENT
     Route: 065
     Dates: start: 20170615, end: 20170915
  41. ONDANSETRON [Concomitant]
     Active Substance: ONDANSETRON
     Indication: NAUSEA
     Route: 065
     Dates: start: 20171223, end: 20171227
  42. ISOVUE [Concomitant]
     Active Substance: IOPAMIDOL
     Route: 065
     Dates: start: 20171226, end: 20171226
  43. BENADRYL [Concomitant]
     Active Substance: DIPHENHYDRAMINE HYDROCHLORIDE
     Route: 065
     Dates: start: 20160908, end: 20161027
  44. OCRELIZUMAB. [Suspect]
     Active Substance: OCRELIZUMAB
     Route: 042
     Dates: start: 20160721
  45. ACETAMINOPHEN. [Concomitant]
     Active Substance: ACETAMINOPHEN
     Route: 065
     Dates: start: 20140323, end: 20140331
  46. PROTANDIM [Concomitant]
     Active Substance: DIETARY SUPPLEMENT
     Route: 065
     Dates: start: 20160416, end: 20170401
  47. VITAMIN E [Concomitant]
     Active Substance: .ALPHA.-TOCOPHEROL
     Route: 065
     Dates: start: 20110101, end: 20121101

REACTIONS (2)
  - Urinary retention [Recovered/Resolved]
  - Pneumonia [Recovered/Resolved]

NARRATIVE: CASE EVENT DATE: 20171222
